FAERS Safety Report 8160305-8 (Version None)
Quarter: 2012Q1

REPORT INFORMATION
  Report Type: 
  Country: None (occurrence: None)
  Receive Date: 20120223
  Receipt Date: 20120223
  Transmission Date: 20120608
  Serious: No
  Sender: FDA-Public Use
  Company Number: None

PATIENT
  Sex: Female
  Weight: 81.646 kg

DRUGS (2)
  1. SIMVASTATIN [Suspect]
     Indication: BLOOD CHOLESTEROL
     Dosage: 1 TAB
     Route: 048
  2. HYDROCHLOROTHIAZIDE [Concomitant]
     Indication: BLOOD PRESSURE
     Dosage: 1 TAB
     Route: 048

REACTIONS (4)
  - PRODUCT SHAPE ISSUE [None]
  - PRODUCT SIZE ISSUE [None]
  - PRODUCT COLOUR ISSUE [None]
  - CONFUSIONAL STATE [None]
